FAERS Safety Report 4423444-0 (Version None)
Quarter: 2004Q3

REPORT INFORMATION
  Report Type: 
  Country: None (occurrence: None)
  Receive Date: 20040806
  Receipt Date: 20040722
  Transmission Date: 20050211
  Serious: Yes (Death)
  Sender: FDA-Public Use
  Company Number: 2004S1002177

PATIENT
  Age: 53 Year
  Sex: Female

DRUGS (10)
  1. CLOZAPINE [Suspect]
     Indication: AUTISM
     Dosage: 50MG BID, ORAL
     Route: 048
     Dates: start: 20040331
  2. CLOZAPINE [Suspect]
     Indication: BIPOLAR DISORDER
     Dosage: 50MG BID, ORAL
     Route: 048
     Dates: start: 20040331
  3. MIRTAZAPINE [Concomitant]
  4. RISPERIDONE [Concomitant]
  5. LORAZEPAM [Concomitant]
  6. TEMAZEPAM [Concomitant]
  7. CARBAMAZEPINE [Concomitant]
  8. DIVALPROEX SODIUM [Concomitant]
  9. CLONAZEPAM [Concomitant]
  10. ZIPRASIDONE [Concomitant]

REACTIONS (1)
  - DEATH [None]
